FAERS Safety Report 7371745-9 (Version None)
Quarter: 2011Q1

REPORT INFORMATION
  Report Type: 
  Country: None (occurrence: None)
  Receive Date: 20110324
  Receipt Date: 20110310
  Transmission Date: 20110831
  Serious: Yes (Other)
  Sender: FDA-Public Use
  Company Number: US-JNJFOC-20110308954

PATIENT
  Age: 55 Year
  Sex: Female
  Weight: 58.51 kg

DRUGS (3)
  1. SYNTHROID [Concomitant]
     Indication: HYPOTHYROIDISM
     Route: 048
  2. ZYRTEC [Suspect]
     Route: 048
  3. ZYRTEC [Suspect]
     Indication: URTICARIA
     Route: 048

REACTIONS (2)
  - WITHDRAWAL SYNDROME [None]
  - OFF LABEL USE [None]
